FAERS Safety Report 8066899-5 (Version None)
Quarter: 2012Q1

REPORT INFORMATION
  Report Type: 
  Country: None (occurrence: None)
  Receive Date: 20120124
  Receipt Date: 20120119
  Transmission Date: 20120608
  Serious: Yes (Other)
  Sender: FDA-Public Use
  Company Number: PHHY2011PL110707

PATIENT
  Age: 80 Year
  Sex: Female

DRUGS (10)
  1. PERINDOPRIL ARGININE [Concomitant]
  2. OMEPRAZOLE [Concomitant]
  3. POTASSIUM CHLORIDE [Concomitant]
  4. TRAMADOL HCL [Suspect]
     Indication: PAIN
  5. AMLODIPINE [Concomitant]
  6. ISOPHANE INSULIN [Concomitant]
  7. FUROSEMIDE [Concomitant]
  8. ACETAMINOPHEN [Concomitant]
     Indication: PAIN
  9. ENOXAPARIN SODIUM [Concomitant]
  10. METOPROLOL TARTRATE [Concomitant]

REACTIONS (6)
  - DISORIENTATION [None]
  - VISUAL IMPAIRMENT [None]
  - DIABETIC NEUROPATHY [None]
  - POOR QUALITY SLEEP [None]
  - DELIRIUM [None]
  - CONFUSIONAL STATE [None]
